FAERS Safety Report 14643617 (Version 1)
Quarter: 2018Q1

REPORT INFORMATION
  Report Type: Spontaneous
  Country: US (occurrence: US)
  Receive Date: 20180315
  Receipt Date: 20180315
  Transmission Date: 20180509
  Serious: Yes (Other)
  Sender: FDA-Public Use
  Company Number: US-NOVOPROD-589891

PATIENT
  Age: 54 Year
  Sex: Female
  Weight: 100.23 kg

DRUGS (2)
  1. NOVOLOG [Suspect]
     Active Substance: INSULIN ASPART
     Indication: TYPE 2 DIABETES MELLITUS
     Dosage: 10 U, WITH EACH MEAL
     Route: 058
     Dates: start: 1996
  2. NOVOLOG [Suspect]
     Active Substance: INSULIN ASPART
     Dosage: 60 U, WITH EACH MEAL
     Route: 058

REACTIONS (4)
  - Transient ischaemic attack [Recovered/Resolved]
  - Cerebrovascular accident [Recovered/Resolved]
  - Coronary artery reocclusion [Not Recovered/Not Resolved]
  - Coronary artery occlusion [Recovered/Resolved]

NARRATIVE: CASE EVENT DATE: 2016
